FAERS Safety Report 19231044 (Version 8)
Quarter: 2021Q3

REPORT INFORMATION
  Report Type: Spontaneous
  Country: JP (occurrence: JP)
  Receive Date: 20210507
  Receipt Date: 20210811
  Transmission Date: 20211014
  Serious: Yes (Death, Life-Threatening, Hospitalization, Disabling, Other)
  Sender: FDA-Public Use
  Company Number: JP-BRISTOL-MYERS SQUIBB COMPANY-BMS-2021-044129

PATIENT
  Age: 76 Year
  Sex: Male
  Weight: 55 kg

DRUGS (4)
  1. OPDIVO [Suspect]
     Active Substance: NIVOLUMAB
     Indication: METASTATIC RENAL CELL CARCINOMA
     Dosage: 240 MILLIGRAM
     Route: 041
     Dates: start: 20210421, end: 20210421
  2. YERVOY [Suspect]
     Active Substance: IPILIMUMAB
     Indication: METASTATIC RENAL CELL CARCINOMA
     Dosage: 55 MILLIGRAM, ONE TIME DOSE (1 MILLIGRAM/KILOGRAM)
     Route: 041
     Dates: start: 20210421, end: 20210421
  3. PREGABALIN. [Concomitant]
     Active Substance: PREGABALIN
     Indication: PRODUCT USED FOR UNKNOWN INDICATION
     Dosage: 75 MILLIGRAM, BID
     Route: 048
     Dates: start: 20210407, end: 20210426
  4. CALONAL [Concomitant]
     Active Substance: ACETAMINOPHEN
     Indication: PRODUCT USED FOR UNKNOWN INDICATION
     Dosage: 600 MILLIGRAM, Q6H
     Route: 048
     Dates: start: 20210402, end: 20210426

REACTIONS (8)
  - Acute hepatic failure [Fatal]
  - Pyrexia [Recovered/Resolved]
  - Procalcitonin increased [Unknown]
  - Blood bilirubin increased [Unknown]
  - Cytokine storm [Recovering/Resolving]
  - Depressed level of consciousness [Unknown]
  - Acute kidney injury [Recovered/Resolved]
  - Platelet count decreased [Not Recovered/Not Resolved]

NARRATIVE: CASE EVENT DATE: 20210421
